FAERS Safety Report 4336598-1 (Version None)
Quarter: 2004Q2

REPORT INFORMATION
  Report Type: 
  Country: None (occurrence: None)
  Receive Date: 20040409
  Receipt Date: 20040409
  Transmission Date: 20050107
  Serious: Yes (Hospitalization)
  Sender: FDA-Public Use
  Company Number: None

PATIENT
  Sex: Female
  Weight: 43.0917 kg

DRUGS (10)
  1. INTERFERON ALPHA 3 MIU        SCHERING [Suspect]
     Indication: RENAL CELL CARCINOMA STAGE UNSPECIFIED
     Dosage: 3 MIU  QD     SUBCUTANEOUS
     Route: 058
     Dates: start: 20040226, end: 20040329
  2. CELECOXIB    200MG    PHARMACIA [Suspect]
     Indication: RENAL CELL CARCINOMA STAGE UNSPECIFIED
     Dosage: 400 MG BID ORAL
     Route: 048
     Dates: start: 20040226, end: 20040329
  3. PROTONIX [Concomitant]
  4. LASIX [Concomitant]
  5. DIFLUCAN [Concomitant]
  6. ROXANOL [Concomitant]
  7. FENTANYL [Concomitant]
  8. NEURONTIN [Concomitant]
  9. ZOCOR [Concomitant]
  10. NAPROSYN [Concomitant]

REACTIONS (5)
  - FAILURE TO THRIVE [None]
  - FATIGUE [None]
  - NAUSEA [None]
  - PAIN [None]
  - VOMITING [None]
